FAERS Safety Report 12976181 (Version 2)
Quarter: 2017Q1

REPORT INFORMATION
  Report Type: Spontaneous
  Country: US (occurrence: US)
  Receive Date: 20161126
  Receipt Date: 20170226
  Transmission Date: 20170428
  Serious: No
  Sender: FDA-Public Use
  Company Number: US-DRREDDYS-USA/USA/16/0084340

PATIENT
  Sex: Male

DRUGS (1)
  1. SUMATRIPTAN INJECTION USP, 6 MG/0.5 ML [Suspect]
     Active Substance: SUMATRIPTAN
     Indication: MIGRAINE
     Route: 058
     Dates: start: 2015

REACTIONS (2)
  - Product physical issue [Unknown]
  - Drug dose omission [Unknown]
